APPROVED DRUG PRODUCT: CLOZAPINE
Active Ingredient: CLOZAPINE
Strength: 25MG
Dosage Form/Route: TABLET;ORAL
Application: A206433 | Product #001 | TE Code: AB
Applicant: AUROBINDO PHARMA LTD
Approved: Nov 29, 2016 | RLD: No | RS: No | Type: RX